FAERS Safety Report 7812645-7 (Version None)
Quarter: 2011Q4

REPORT INFORMATION
  Report Type: 
  Country: None (occurrence: None)
  Receive Date: 20111013
  Receipt Date: 20111004
  Transmission Date: 20120403
  Serious: Yes (Other)
  Sender: FDA-Public Use
  Company Number: US-ASTRAZENECA-2011SE59602

PATIENT

DRUGS (2)
  1. DASATINIB [Suspect]
     Dosage: 65 MG/M2
  2. VANDETANIB [Suspect]
     Dosage: 65-85 MG/M2
     Route: 048

REACTIONS (4)
  - THROMBOCYTOPENIA [None]
  - HYPOALBUMINAEMIA [None]
  - LIPASE INCREASED [None]
  - BLOOD AMYLASE INCREASED [None]
